FAERS Safety Report 7968688-6 (Version None)
Quarter: 2011Q4

REPORT INFORMATION
  Report Type: 
  Country: None (occurrence: None)
  Receive Date: 20111209
  Receipt Date: 20111130
  Transmission Date: 20120403
  Serious: Yes (Other)
  Sender: FDA-Public Use
  Company Number: US-CEPHALON-2011006030

PATIENT
  Sex: Female
  Weight: 77 kg

DRUGS (2)
  1. FENTANYL-100 [Concomitant]
  2. FENTORA [Suspect]
     Indication: BONE CANCER METASTATIC
     Route: 002
     Dates: start: 20080101, end: 20100101

REACTIONS (5)
  - DRUG PRESCRIBING ERROR [None]
  - DRUG INEFFECTIVE [None]
  - APPLICATION SITE REACTION [None]
  - DRY MOUTH [None]
  - DIABETES MELLITUS [None]
